FAERS Safety Report 6866993-8 (Version None)
Quarter: 2010Q3

REPORT INFORMATION
  Report Type: 
  Country: None (occurrence: None)
  Receive Date: 20100722
  Receipt Date: 20100713
  Transmission Date: 20110219
  Serious: Yes (Hospitalization)
  Sender: FDA-Public Use
  Company Number: IT-CELGENEUS-083-21880-10032675

PATIENT
  Sex: Male
  Weight: 69 kg

DRUGS (3)
  1. REVLIMID [Suspect]
     Indication: MULTIPLE MYELOMA
     Route: 048
     Dates: start: 20100201
  2. SOLDESAM [Suspect]
     Indication: MULTIPLE MYELOMA
     Route: 048
     Dates: start: 20100201
  3. ASPIRIN [Concomitant]
     Indication: PROPHYLAXIS
     Route: 048
     Dates: start: 20100323, end: 20100416

REACTIONS (1)
  - MONOCLONAL IMMUNOGLOBULIN PRESENT [None]
